FAERS Safety Report 13609465 (Version 3)
Quarter: 2017Q3

REPORT INFORMATION
  Report Type: Report from Study
  Country: None (occurrence: US)
  Receive Date: 20170602
  Receipt Date: 20170929
  Transmission Date: 20171127
  Serious: Yes (Death, Other)
  Sender: FDA-Public Use
  Company Number: US-VIFOR (INTERNATIONAL) INC.-VIT-2017-05988

PATIENT
  Age: 59 Year
  Sex: Female

DRUGS (9)
  1. ZONEGRAN [Concomitant]
     Active Substance: ZONISAMIDE
  2. RENVELA [Concomitant]
     Active Substance: SEVELAMER CARBONATE
  3. MIDODRINE [Concomitant]
     Active Substance: MIDODRINE
  4. LAMICTAL [Concomitant]
     Active Substance: LAMOTRIGINE
  5. SODIUM BICARBONATE. [Concomitant]
     Active Substance: SODIUM BICARBONATE
  6. DEPAKOTE ER [Concomitant]
     Active Substance: DIVALPROEX SODIUM
  7. LEVOTHYROXINE. [Concomitant]
     Active Substance: LEVOTHYROXINE
  8. PROTONIX [Concomitant]
     Active Substance: PANTOPRAZOLE SODIUM
  9. VELTASSA [Suspect]
     Active Substance: PATIROMER
     Indication: HYPERKALAEMIA
     Route: 048
     Dates: start: 20170314, end: 20170828

REACTIONS (2)
  - Death [Fatal]
  - Hip fracture [Unknown]

NARRATIVE: CASE EVENT DATE: 2017
